FAERS Safety Report 7088498-4 (Version None)
Quarter: 2010Q4

REPORT INFORMATION
  Report Type: 
  Country: None (occurrence: None)
  Receive Date: 20101108
  Receipt Date: 20101103
  Transmission Date: 20110411
  Serious: Yes (Other)
  Sender: FDA-Public Use
  Company Number: CA-ROCHE-738607

PATIENT
  Sex: Female
  Weight: 72 kg

DRUGS (11)
  1. BEVACIZUMAB [Suspect]
     Indication: GLIOBLASTOMA
     Dosage: FORM: INFUSION
     Route: 042
     Dates: start: 20100924
  2. CARBAMAZEPINE [Concomitant]
  3. HYDROCORTISONE [Concomitant]
  4. LEVOTHYROXINE [Concomitant]
  5. ESTRACE [Concomitant]
  6. PROVERA [Concomitant]
  7. TRAMADOL HCL [Concomitant]
  8. ATIVAN [Concomitant]
  9. GRAVOL TAB [Concomitant]
  10. AERIUS [Concomitant]
  11. ONDANSETRON [Concomitant]

REACTIONS (1)
  - CONVULSION [None]
